FAERS Safety Report 19122707 (Version 1)
Quarter: 2021Q2

REPORT INFORMATION
  Report Type: Spontaneous
  Country: PT (occurrence: PT)
  Receive Date: 20210412
  Receipt Date: 20210412
  Transmission Date: 20210717
  Serious: Yes (Other)
  Sender: FDA-Public Use
  Company Number: PT-ACCORD-221486

PATIENT
  Age: 65 Year
  Sex: Male
  Weight: 75 kg

DRUGS (2)
  1. CAPECITABINE. [Concomitant]
     Active Substance: CAPECITABINE
     Indication: COLON CANCER METASTATIC
     Route: 048
  2. OXALIPLATIN ACCORD [Suspect]
     Active Substance: OXALIPLATIN
     Indication: COLON CANCER METASTATIC
     Dosage: STRENGTH?5MG/ML
     Route: 042

REACTIONS (2)
  - Hypoaesthesia [Recovered/Resolved]
  - Pain in extremity [Recovered/Resolved]

NARRATIVE: CASE EVENT DATE: 20210318
